FAERS Safety Report 9087196 (Version 1)
Quarter: 2013Q1

REPORT INFORMATION
  Report Type: Spontaneous
  Country: US (occurrence: US)
  Receive Date: 20130201
  Receipt Date: 20130201
  Transmission Date: 20140127
  Serious: No
  Sender: FDA-Public Use
  Company Number: US-009507513-1210USA008742

PATIENT
  Sex: 0

DRUGS (2)
  1. DULERA [Suspect]
     Indication: ASTHMA
     Dosage: UNK
     Route: 055
     Dates: end: 201209
  2. DULERA [Suspect]
     Dosage: UNK
     Route: 055
     Dates: start: 201209

REACTIONS (2)
  - Drug ineffective [Unknown]
  - Product quality issue [Unknown]
